FAERS Safety Report 10905593 (Version 6)
Quarter: 2017Q3

REPORT INFORMATION
  Report Type: Spontaneous
  Country: US (occurrence: US)
  Receive Date: 20150311
  Receipt Date: 20170816
  Transmission Date: 20171127
  Serious: Yes (Other)
  Sender: FDA-Public Use
  Company Number: US-PFIZER INC-2015082598

PATIENT
  Age: 64 Year
  Sex: Male
  Weight: 86 kg

DRUGS (9)
  1. FENOFIBRATE. [Concomitant]
     Active Substance: FENOFIBRATE
     Indication: BLOOD CHOLESTEROL
     Dosage: UNK
  2. COMBIGAN [Concomitant]
     Active Substance: BRIMONIDINE TARTRATE\TIMOLOL MALEATE
     Dosage: 2 GTT, 2X/DAY (ONE DROP IN EACH EYE IN MORNING AND IN EVENING)
     Route: 047
  3. LATANOPROST. [Concomitant]
     Active Substance: LATANOPROST
     Dosage: UNK
  4. AZOR [Concomitant]
     Active Substance: AMLODIPINE BESYLATE\OLMESARTAN MEDOXOMIL
     Indication: BLOOD PRESSURE INCREASED
     Dosage: UNK
  5. COMBIGAN [Concomitant]
     Active Substance: BRIMONIDINE TARTRATE\TIMOLOL MALEATE
     Dosage: UNK, 1X/DAY(TAKE THAT IN MORNING)
  6. XALATAN [Suspect]
     Active Substance: LATANOPROST
     Indication: GLAUCOMA
     Dosage: 1 DROP IN EACH EYE AT BEDTIME
     Route: 047
  7. XALATAN [Suspect]
     Active Substance: LATANOPROST
     Dosage: 2 GTT, 1X/DAY (125MG/2.5 ML ONE DROP IN EACH EYE AT NIGHT)
     Route: 047
  8. VALSARTAN. [Concomitant]
     Active Substance: VALSARTAN
     Indication: HYPERTENSION
     Dosage: UNK
  9. FLUVASTATIN [Concomitant]
     Active Substance: FLUVASTATIN SODIUM
     Indication: BLOOD CHOLESTEROL
     Dosage: UNK

REACTIONS (5)
  - Erythema [Unknown]
  - Rash papular [Unknown]
  - Blood cholesterol increased [Unknown]
  - Nasal oedema [Not Recovered/Not Resolved]
  - Visual impairment [Unknown]

NARRATIVE: CASE EVENT DATE: 2016
